FAERS Safety Report 20840320 (Version 9)
Quarter: 2024Q4

REPORT INFORMATION
  Report Type: Spontaneous
  Country: US (occurrence: US)
  Receive Date: 20220517
  Receipt Date: 20241203
  Transmission Date: 20250115
  Serious: No
  Sender: PFIZER
  Company Number: US-PFIZER INC-202200659290

PATIENT
  Age: 76 Year
  Sex: Female
  Weight: 79.32 kg

DRUGS (2)
  1. IBRANCE [Suspect]
     Active Substance: PALBOCICLIB
     Indication: Breast cancer female
     Dosage: DAILY FOR 3 WEEKS ON AND ONE WEEK OFF
     Route: 048
  2. IBRANCE [Suspect]
     Active Substance: PALBOCICLIB
     Dosage: 100 MG, DAILY
     Route: 048

REACTIONS (1)
  - Full blood count abnormal [Recovered/Resolved]
